FAERS Safety Report 6680890-2 (Version None)
Quarter: 2010Q2

REPORT INFORMATION
  Report Type: 
  Country: None (occurrence: None)
  Receive Date: 20100412
  Receipt Date: 20100401
  Transmission Date: 20101027
  Serious: Yes (Hospitalization)
  Sender: FDA-Public Use
  Company Number: 97850

PATIENT
  Age: 57 Year
  Sex: Male

DRUGS (1)
  1. CISPLATIN [Suspect]
     Indication: HEAD AND NECK CANCER
     Dosage: 320MG (180 MG/M2)

REACTIONS (7)
  - ACCIDENTAL OVERDOSE [None]
  - BONE MARROW FAILURE [None]
  - MEDICATION ERROR [None]
  - NAUSEA [None]
  - RENAL FAILURE [None]
  - TINNITUS [None]
  - VOMITING [None]
